FAERS Safety Report 10165099 (Version 1)
Quarter: 2014Q2

REPORT INFORMATION
  Report Type: Spontaneous
  Country: US (occurrence: US)
  Receive Date: 20140510
  Receipt Date: 20140510
  Transmission Date: 20141212
  Serious: No
  Sender: FDA-Public Use
  Company Number: US-BRISTOL-MYERS SQUIBB COMPANY-19723527

PATIENT
  Age: 53 Year
  Sex: Female
  Weight: 160.54 kg

DRUGS (3)
  1. BYDUREON [Suspect]
     Indication: TYPE 2 DIABETES MELLITUS
     Dates: start: 201306
  2. METFORMIN [Concomitant]
     Route: 048
  3. NOVOLIN 70/30 [Concomitant]
     Dosage: INJ/SQ SLIDING SCALE 90 UNITS MINIMUM A DAY
     Route: 058

REACTIONS (3)
  - Gastroenteritis viral [Recovering/Resolving]
  - Injection site mass [Recovering/Resolving]
  - Injection site pain [Recovered/Resolved]
